FAERS Safety Report 21402063 (Version 2)
Quarter: 2022Q4

REPORT INFORMATION
  Report Type: Spontaneous
  Country: US (occurrence: US)
  Receive Date: 20221003
  Receipt Date: 20221107
  Transmission Date: 20230112
  Serious: No
  Sender: FDA-Public Use
  Company Number: US-BRISTOL-MYERS SQUIBB COMPANY-2022-114456

PATIENT
  Age: 72 Year
  Sex: Male

DRUGS (1)
  1. REVLIMID [Suspect]
     Active Substance: LENALIDOMIDE
     Indication: Plasma cell myeloma
     Route: 048

REACTIONS (6)
  - Blood test abnormal [Unknown]
  - Dysphonia [Unknown]
  - Weight decreased [Unknown]
  - Rash [Unknown]
  - Pollakiuria [Unknown]
  - Hypotension [Unknown]
